FAERS Safety Report 18559109 (Version 1)
Quarter: 2020Q4

REPORT INFORMATION
  Report Type: Other
  Country: FR (occurrence: FR)
  Receive Date: 20201130
  Receipt Date: 20201130
  Transmission Date: 20210114
  Serious: Yes (Hospitalization)
  Sender: FDA-Public Use
  Company Number: FR-CADILA HEALTHCARE LIMITED-FR-ZYDUS-058683

PATIENT

DRUGS (2)
  1. AMIODARONE [Suspect]
     Active Substance: AMIODARONE
     Indication: ATRIAL FIBRILLATION
     Dosage: UNK
     Route: 048
     Dates: start: 202008
  2. DEPAKOTE [Suspect]
     Active Substance: DIVALPROEX SODIUM
     Indication: BIPOLAR DISORDER
     Dosage: 1500 MILLIGRAM, QD
     Route: 048
     Dates: start: 201909

REACTIONS (2)
  - Pericarditis [Not Recovered/Not Resolved]
  - Pleurisy [Not Recovered/Not Resolved]

NARRATIVE: CASE EVENT DATE: 202009
